FAERS Safety Report 5841899-1 (Version None)
Quarter: 2008Q3

REPORT INFORMATION
  Report Type: 
  Country: None (occurrence: None)
  Receive Date: 20080811
  Receipt Date: 20080811
  Transmission Date: 20090109
  Serious: Yes (Life-Threatening)
  Sender: FDA-Public Use
  Company Number: None

PATIENT
  Age: 53 Year
  Sex: Female
  Weight: 71.6683 kg

DRUGS (1)
  1. SEROQUEL [Suspect]
     Indication: BIPOLAR DISORDER
     Dates: start: 20050701, end: 20080730

REACTIONS (31)
  - ABDOMINAL PAIN LOWER [None]
  - BALANCE DISORDER [None]
  - BONE PAIN [None]
  - BRUXISM [None]
  - CONSTIPATION [None]
  - EATING DISORDER [None]
  - FALL [None]
  - FATIGUE [None]
  - FEELING DRUNK [None]
  - GAIT DISTURBANCE [None]
  - HALLUCINATION [None]
  - HEART RATE DECREASED [None]
  - HYDROCEPHALUS [None]
  - HYPERSOMNIA [None]
  - HYPOAESTHESIA [None]
  - HYPOTENSION [None]
  - ILL-DEFINED DISORDER [None]
  - INTRASPINAL ABSCESS [None]
  - METABOLIC DISORDER [None]
  - MOVEMENT DISORDER [None]
  - MUSCULOSKELETAL STIFFNESS [None]
  - NAUSEA [None]
  - NEUROPATHY PERIPHERAL [None]
  - PALPITATIONS [None]
  - PRURITUS [None]
  - PURULENT DISCHARGE [None]
  - SLEEP DISORDER [None]
  - SPEECH DISORDER [None]
  - SUBCUTANEOUS ABSCESS [None]
  - URTICARIA [None]
  - WEIGHT DECREASED [None]
